FAERS Safety Report 10055314 (Version 1)
Quarter: 2014Q2

REPORT INFORMATION
  Report Type: Spontaneous
  Country: US (occurrence: US)
  Receive Date: 20140403
  Receipt Date: 20140403
  Transmission Date: 20141212
  Serious: Yes (Other)
  Sender: FDA-Public Use
  Company Number: US-BIOGENIDEC-2014BI029184

PATIENT
  Sex: Female
  Weight: 61 kg

DRUGS (11)
  1. AVONEX [Suspect]
     Indication: MULTIPLE SCLEROSIS
     Route: 030
     Dates: start: 20010806, end: 20070901
  2. TRAMADOL HCL [Concomitant]
     Indication: PAIN
  3. GABAPENTIN [Concomitant]
     Route: 048
  4. TIZANIDINE HCL [Concomitant]
  5. VENLAFAXINE HCL ER [Concomitant]
  6. VENLAFAXINE HCL ER [Concomitant]
     Dates: start: 20130424
  7. REMERON [Concomitant]
  8. LORAZEPAM [Concomitant]
  9. LORAZEPAM [Concomitant]
  10. HYDROCODONE [Concomitant]
     Route: 048
  11. ACETAMINOPHEN [Concomitant]
     Route: 048

REACTIONS (14)
  - Spinal laminectomy [Unknown]
  - Appendicectomy [Unknown]
  - Hysterectomy [Unknown]
  - Female sterilisation [Unknown]
  - Cognitive disorder [Unknown]
  - Lumbar spinal stenosis [Unknown]
  - Somnolence [Unknown]
  - Multiple sclerosis [Not Recovered/Not Resolved]
  - Alcoholism [Unknown]
  - Drug dependence [Unknown]
  - Pain in extremity [Unknown]
  - Anxiety [Unknown]
  - Headache [Unknown]
  - Limb discomfort [Unknown]
